FAERS Safety Report 5944659-6 (Version None)
Quarter: 2008Q4

REPORT INFORMATION
  Report Type: 
  Country: None (occurrence: None)
  Receive Date: 20081105
  Receipt Date: 20080926
  Transmission Date: 20090506
  Serious: No
  Sender: FDA-Public Use
  Company Number: 2008EU001559

PATIENT
  Age: 23 Year
  Sex: Male

DRUGS (3)
  1. PROTOPIC [Suspect]
     Indication: DERMATITIS ATOPIC
     Dosage: 0.1 % BID, TOPICAL
     Route: 061
     Dates: start: 20080306, end: 20080408
  2. PROTOPIC [Suspect]
     Indication: DERMATITIS ATOPIC
     Dosage: 0.1 % BID, TOPICAL
     Route: 061
     Dates: start: 20080408, end: 20080619
  3. DEXERYL (WHITE SOFT PARAFFIN, PARAFFIN, LIQUID) [Concomitant]

REACTIONS (2)
  - NO THERAPEUTIC RESPONSE [None]
  - SKIN PAPILLOMA [None]
